FAERS Safety Report 22035712 (Version 1)
Quarter: 2023Q1

REPORT INFORMATION
  Report Type: Report from Study
  Country: US (occurrence: None)
  Receive Date: 20230224
  Receipt Date: 20230224
  Transmission Date: 20230418
  Serious: Yes (Hospitalization)
  Sender: FDA-Public Use
  Company Number: US-Eisai Medical Research-EC-2023-134821

PATIENT
  Age: 45 Year
  Sex: Female
  Weight: 75 kg

DRUGS (16)
  1. LENVIMA [Suspect]
     Active Substance: LENVATINIB
     Indication: Ovarian cancer
     Route: 048
     Dates: start: 20220623
  2. LENVIMA [Suspect]
     Active Substance: LENVATINIB
     Indication: Metastases to lymph nodes
  3. LENVIMA [Suspect]
     Active Substance: LENVATINIB
     Indication: Adrenal gland cancer
  4. LENVIMA [Suspect]
     Active Substance: LENVATINIB
     Indication: Metastases to lung
  5. LENVIMA [Suspect]
     Active Substance: LENVATINIB
     Indication: Metastases to liver
  6. LENVIMA [Suspect]
     Active Substance: LENVATINIB
     Indication: Retroperitoneal neoplasm metastatic
  7. LENVIMA [Suspect]
     Active Substance: LENVATINIB
     Indication: Gastrointestinal neoplasm
  8. ALLOPURINOL [Concomitant]
     Active Substance: ALLOPURINOL
     Indication: Product used for unknown indication
     Dosage: UNKNOWN DOSE AND FREQUENCY
  9. AMLODIPINE [Concomitant]
     Active Substance: AMLODIPINE BESYLATE
     Indication: Product used for unknown indication
     Dosage: UNKNOWN DOSE AND FREQUENCY
  10. ANUCORT-HC [Concomitant]
     Active Substance: HYDROCORTISONE ACETATE
     Indication: Product used for unknown indication
     Dosage: UNKNOWN DOSE AND FREQUENCY
  11. BENZONATATE [Concomitant]
     Active Substance: BENZONATATE
     Indication: Product used for unknown indication
     Dosage: UNKNOWN DOSE AND FREQUENCY
  12. CEPHALEXIN [Concomitant]
     Active Substance: CEPHALEXIN
     Indication: Product used for unknown indication
     Dosage: UNKNOWN DOSE AND FREQUENCY
  13. ENOXAPARIN [Concomitant]
     Active Substance: ENOXAPARIN
     Indication: Product used for unknown indication
     Dosage: UNKNOWN DOSE AND FREQUENCY
  14. HYDROMORPHONE [Concomitant]
     Active Substance: HYDROMORPHONE
     Indication: Product used for unknown indication
     Dosage: UNKNOWN DOSE AND FREQUENCY
  15. ONDANSETRON [Concomitant]
     Active Substance: ONDANSETRON
     Indication: Product used for unknown indication
     Dosage: UNKNOWN DOSE AND FREQUENCY
  16. SUMATRIPTAN [Concomitant]
     Active Substance: SUMATRIPTAN
     Indication: Product used for unknown indication
     Dosage: UNKNOWN DOSE AND FREQUENCY

REACTIONS (1)
  - Malaise [Unknown]
